FAERS Safety Report 6464789-2 (Version None)
Quarter: 2009Q4

REPORT INFORMATION
  Report Type: 
  Country: None (occurrence: None)
  Receive Date: 20091201
  Receipt Date: 20091119
  Transmission Date: 20100525
  Serious: Yes (Hospitalization)
  Sender: FDA-Public Use
  Company Number: PHHY2009MX51110

PATIENT
  Age: 96 Year
  Sex: Female

DRUGS (2)
  1. DIOVAN HCT [Suspect]
     Indication: HYPERTENSION
     Dosage: 1 TABLET (160/12.5  MG) PER DAY
     Dates: start: 20061015, end: 20091018
  2. ASPIRIN [Concomitant]
     Dosage: 1 TABLET PER DAY

REACTIONS (2)
  - ENCEPHALITIS [None]
  - HYPERTENSION [None]
